FAERS Safety Report 11992371 (Version 1)
Quarter: 2016Q1

REPORT INFORMATION
  Report Type: Spontaneous
  Country: US (occurrence: None)
  Receive Date: 20160202
  Receipt Date: 20160202
  Transmission Date: 20160526
  Serious: No
  Sender: FDA-Public Use
  Company Number: None

PATIENT
  Age: 62 Year
  Sex: Female

DRUGS (7)
  1. LISINOPRIL. [Suspect]
     Active Substance: LISINOPRIL
  2. PANTOPRAZOLE [Suspect]
     Active Substance: PANTOPRAZOLE SODIUM
  3. NOVOLOG [Concomitant]
     Active Substance: INSULIN ASPART
  4. CLOPIDOGREL [Suspect]
     Active Substance: CLOPIDOGREL BISULFATE
  5. GABAPENTIN. [Suspect]
     Active Substance: GABAPENTIN
  6. INVOKANA [Suspect]
     Active Substance: CANAGLIFLOZIN
  7. LEVOTHYROXINE. [Suspect]
     Active Substance: LEVOTHYROXINE

REACTIONS (13)
  - Malaise [None]
  - Headache [None]
  - Abasia [None]
  - Neuropathy peripheral [None]
  - Arterial disorder [None]
  - Vomiting [None]
  - Sleep disorder [None]
  - Fall [None]
  - Hypophagia [None]
  - Weight decreased [None]
  - Nasopharyngitis [None]
  - Feeling abnormal [None]
  - Ageusia [None]
